FAERS Safety Report 9893365 (Version 1)
Quarter: 2014Q1

REPORT INFORMATION
  Report Type: Spontaneous
  Country: GB (occurrence: GB)
  Receive Date: 20140213
  Receipt Date: 20140213
  Transmission Date: 20141002
  Serious: Yes (Life-Threatening, Hospitalization)
  Sender: FDA-Public Use
  Company Number: GB-JNJFOC-20140206799

PATIENT
  Age: 73 Year
  Sex: Female
  Weight: 57.14 kg

DRUGS (6)
  1. XARELTO [Suspect]
     Indication: CEREBROVASCULAR ACCIDENT PROPHYLAXIS
     Route: 048
     Dates: start: 20130208, end: 20140103
  2. XARELTO [Suspect]
     Indication: ATRIAL FIBRILLATION
     Route: 048
     Dates: start: 20130208, end: 20140103
  3. PARACETAMOL [Concomitant]
     Indication: NECK PAIN
     Route: 048
     Dates: start: 201312, end: 20140130
  4. DICLOFENAC [Concomitant]
     Indication: NECK PAIN
     Route: 048
     Dates: start: 201312, end: 20140103
  5. OMEPRAZOLE [Concomitant]
     Route: 048
  6. ASPIRIN [Concomitant]
     Indication: NECK PAIN
     Route: 048
     Dates: start: 201312, end: 20140103

REACTIONS (3)
  - Haemoglobin decreased [Recovering/Resolving]
  - Melaena [Recovering/Resolving]
  - Gastritis erosive [Unknown]
